FAERS Safety Report 17447411 (Version 3)
Quarter: 2020Q1

REPORT INFORMATION
  Report Type: Report from Study
  Country: IE (occurrence: IE)
  Receive Date: 20200221
  Receipt Date: 20200311
  Transmission Date: 20200409
  Serious: Yes (Hospitalization)
  Sender: FDA-Public Use
  Company Number: IE-BAYER-2020-028218

PATIENT
  Sex: Female
  Weight: 65.7 kg

DRUGS (11)
  1. VENLAFAXINE [Concomitant]
     Active Substance: VENLAFAXINE HYDROCHLORIDE
     Indication: DEPRESSION
     Dosage: 75 MG, QD
     Route: 048
     Dates: start: 2018
  2. VITAMIN D [VITAMIN D NOS] [Concomitant]
     Active Substance: VITAMIN D NOS
     Indication: BREAST CANCER METASTATIC
     Dosage: 1 BD
     Route: 048
     Dates: start: 2015
  3. COPANLISIB. [Suspect]
     Active Substance: COPANLISIB
     Indication: BREAST CANCER METASTATIC
     Dosage: 60 MG
     Route: 042
     Dates: start: 20200212
  4. COPANLISIB. [Suspect]
     Active Substance: COPANLISIB
     Indication: BREAST CANCER METASTATIC
     Dosage: 60 MG
     Route: 042
     Dates: start: 20200205
  5. CALCIUM [Concomitant]
     Active Substance: CALCIUM
     Indication: BREAST CANCER METASTATIC
     Dosage: 1 BD
     Route: 048
     Dates: start: 2015
  6. CYCLIZINE [Concomitant]
     Active Substance: CYCLIZINE
     Indication: NAUSEA
     Dosage: 50 MG, PRN
     Route: 048
     Dates: start: 20200212
  7. TRASTUZUMAB. [Suspect]
     Active Substance: TRASTUZUMAB
     Indication: BREAST CANCER METASTATIC
     Dosage: 126 MG
     Route: 042
     Dates: start: 20200205
  8. TRASTUZUMAB. [Suspect]
     Active Substance: TRASTUZUMAB
     Indication: BREAST CANCER METASTATIC
     Dosage: 126 MG
     Route: 042
     Dates: start: 20200212
  9. DENOSUMAB [Concomitant]
     Active Substance: DENOSUMAB
     Indication: BREAST CANCER METASTATIC
     Dosage: 60 MG
     Route: 058
     Dates: start: 2013
  10. IMODIUM [Concomitant]
     Active Substance: LOPERAMIDE HYDROCHLORIDE
     Indication: DIARRHOEA
     Dosage: 2 MG, PRN
     Route: 048
     Dates: start: 20200212
  11. ALPRAZOLAM. [Concomitant]
     Active Substance: ALPRAZOLAM
     Indication: ANXIETY
     Dosage: 250 MCG
     Route: 048
     Dates: start: 20200219, end: 20200219

REACTIONS (3)
  - Malaise [Recovered/Resolved]
  - Vomiting [Recovered/Resolved]
  - Chest pain [Recovered/Resolved]

NARRATIVE: CASE EVENT DATE: 20200212
